FAERS Safety Report 26051489 (Version 1)
Quarter: 2025Q4

REPORT INFORMATION
  Report Type: Spontaneous
  Country: CN (occurrence: CN)
  Receive Date: 20251117
  Receipt Date: 20251117
  Transmission Date: 20260117
  Serious: Yes (Other)
  Sender: EXELA PHARMA SCIENCES
  Company Number: CN-EXELAPHARMA-2025EXLA00207

PATIENT
  Age: 72 Year
  Sex: Male

DRUGS (9)
  1. BLOXIVERZ [Suspect]
     Active Substance: NEOSTIGMINE METHYLSULFATE
     Indication: Neuromuscular blockade reversal
     Route: 042
     Dates: start: 20240428
  2. SUCCINYLCHOLINE [Concomitant]
     Active Substance: SUCCINYLCHOLINE
     Dosage: 0.1-0.2 MG/KG
     Route: 042
     Dates: start: 20240428
  3. SUCCINYLCHOLINE [Concomitant]
     Active Substance: SUCCINYLCHOLINE
     Dosage: GIVEN ADDITIONAL NEUROMUSCULAR BLOCKING AGENTS DUE TO  INTRAOPERATIVE AGITATION
     Dates: start: 20240428
  4. UNSPECIFIED INGREDIENT [Concomitant]
     Active Substance: UNSPECIFIED INGREDIENT
     Indication: Anaesthesia
     Route: 042
     Dates: start: 20240428
  5. Sedation [Concomitant]
     Indication: Sedation
     Route: 042
     Dates: start: 20240428
  6. SUFENTANIL [Concomitant]
     Active Substance: SUFENTANIL
     Indication: Anaesthesia
     Route: 042
     Dates: start: 20240428
  7. MIDAZOLAM [Concomitant]
     Active Substance: MIDAZOLAM
     Indication: Anaesthesia
     Route: 042
     Dates: start: 20240428
  8. PROPOFOL [Concomitant]
     Active Substance: PROPOFOL
     Indication: Anaesthesia
     Dosage: 1.0-1.5 MG/KG
     Route: 042
     Dates: start: 20240428
  9. CISATRACURIUM [Concomitant]
     Active Substance: CISATRACURIUM
     Indication: Anaesthesia
     Dosage: 0.1-0.2 MG/KG
     Route: 042
     Dates: start: 20240428

REACTIONS (3)
  - Respiratory muscle weakness [Unknown]
  - Hypoxia [Unknown]
  - Dyspnoea [Unknown]

NARRATIVE: CASE EVENT DATE: 20240428
